FAERS Safety Report 9379132 (Version 1)
Quarter: 2013Q3

REPORT INFORMATION
  Report Type: Spontaneous
  Country: US (occurrence: US)
  Receive Date: 20130702
  Receipt Date: 20130702
  Transmission Date: 20140515
  Serious: Yes (Life-Threatening)
  Sender: FDA-Public Use
  Company Number: US-ROCHE-1227938

PATIENT
  Age: 59 Year
  Sex: Female

DRUGS (3)
  1. RITUXAN [Suspect]
     Indication: MICROSCOPIC POLYANGIITIS
     Route: 042
     Dates: end: 2013
  2. RITUXAN [Suspect]
     Indication: VASCULITIS
  3. PREDNISONE [Concomitant]
     Indication: VASCULITIS
     Route: 048

REACTIONS (1)
  - Meningitis cryptococcal [Not Recovered/Not Resolved]
